FAERS Safety Report 6450837-2 (Version None)
Quarter: 2009Q4

REPORT INFORMATION
  Report Type: 
  Country: None (occurrence: None)
  Receive Date: 20091123
  Receipt Date: 20090210
  Transmission Date: 20100525
  Serious: Yes (Other)
  Sender: FDA-Public Use
  Company Number: US-AMGEN-QUU331982

PATIENT
  Sex: Male

DRUGS (2)
  1. ENBREL [Suspect]
     Indication: ANKYLOSING SPONDYLITIS
     Route: 058
     Dates: start: 20070401, end: 20090101
  2. COUMADIN [Concomitant]

REACTIONS (5)
  - DEEP VEIN THROMBOSIS [None]
  - INJECTION SITE HAEMATOMA [None]
  - INTERNATIONAL NORMALISED RATIO FLUCTUATION [None]
  - PROTHROMBIN LEVEL [None]
  - THROMBOPHLEBITIS SUPERFICIAL [None]
